FAERS Safety Report 12252944 (Version 3)
Quarter: 2016Q2

REPORT INFORMATION
  Report Type: Spontaneous
  Country: US (occurrence: US)
  Receive Date: 20160411
  Receipt Date: 20160516
  Transmission Date: 20160815
  Serious: Yes (Hospitalization, Disabling, Other)
  Sender: FDA-Public Use
  Company Number: US-009507513-1110USA03836

PATIENT
  Sex: Female
  Weight: 67.18 kg

DRUGS (8)
  1. ALENDRONATE SODIUM. [Suspect]
     Active Substance: ALENDRONATE SODIUM
     Indication: OSTEOPOROSIS
     Dosage: 70 MG, QW
     Route: 048
     Dates: start: 200802
  2. FOSAMAX [Suspect]
     Active Substance: ALENDRONATE SODIUM
     Dosage: 70 MG, QW
     Route: 048
     Dates: end: 20050808
  3. ALENDRONATE SODIUM. [Suspect]
     Active Substance: ALENDRONATE SODIUM
     Indication: OSTEOPOROSIS
     Dosage: 70 MG, UNK
     Route: 065
     Dates: start: 20100609, end: 201010
  4. FOSAMAX [Suspect]
     Active Substance: ALENDRONATE SODIUM
     Indication: OSTEOPOROSIS
     Dosage: 10 MG, QD
     Route: 048
     Dates: start: 1997
  5. ALENDRONATE SODIUM. [Suspect]
     Active Substance: ALENDRONATE SODIUM
     Indication: OSTEOPOROSIS
     Dosage: UNK UNK, QW
     Route: 048
     Dates: start: 20051028, end: 20070208
  6. ALENDRONATE SODIUM. [Suspect]
     Active Substance: ALENDRONATE SODIUM
     Indication: OSTEOPOROSIS
     Dosage: 70 MG, UNK
     Route: 048
     Dates: start: 20081113, end: 201006
  7. FOSAMAX PLUS D [Suspect]
     Active Substance: ALENDRONATE SODIUM\CHOLECALCIFEROL
     Indication: OSTEOPOROSIS
     Dosage: 70 MG, QW
     Route: 048
     Dates: start: 20070205, end: 200802
  8. ALENDRONATE SODIUM. [Suspect]
     Active Substance: ALENDRONATE SODIUM
     Dosage: 70 MG, QD
     Route: 048
     Dates: end: 200912

REACTIONS (62)
  - Left atrial dilatation [Unknown]
  - Pleural fibrosis [Unknown]
  - Spinal osteoarthritis [Unknown]
  - Adverse event [Unknown]
  - Diverticulum [Unknown]
  - Chronic kidney disease [Unknown]
  - Fall [Unknown]
  - Bundle branch block right [Unknown]
  - Tendonitis [Unknown]
  - Fatigue [Unknown]
  - Osteopenia [Unknown]
  - Hypertonic bladder [Unknown]
  - Nausea [Unknown]
  - Impaired healing [Unknown]
  - Impaired healing [Unknown]
  - Drug ineffective [Unknown]
  - Arthralgia [Unknown]
  - Arthritis [Unknown]
  - Pelvic fracture [Unknown]
  - Tooth disorder [Unknown]
  - Overdose [Unknown]
  - Osteoarthritis [Unknown]
  - Urinary incontinence [Unknown]
  - Atrophic vulvovaginitis [Unknown]
  - Epistaxis [Unknown]
  - Inflammation [Unknown]
  - Colitis ischaemic [Unknown]
  - Femur fracture [Unknown]
  - Hypovolaemia [Unknown]
  - Musculoskeletal chest pain [Unknown]
  - Pain in extremity [Unknown]
  - Vomiting [Unknown]
  - Vitamin D deficiency [Unknown]
  - Fallopian tube cyst [Unknown]
  - Anaemia postoperative [Unknown]
  - Urinary tract infection [Unknown]
  - Contusion [Unknown]
  - Nausea [Unknown]
  - Deafness [Unknown]
  - Gastrointestinal haemorrhage [Unknown]
  - Stress fracture [Unknown]
  - Syncope [Unknown]
  - Haematoma [Unknown]
  - Osteoarthritis [Unknown]
  - Adverse event [Unknown]
  - Fatigue [Unknown]
  - Femur fracture [Not Recovered/Not Resolved]
  - Dermoid cyst [Unknown]
  - Cataract [Unknown]
  - Hypotension [Unknown]
  - Pollakiuria [Unknown]
  - Hyperlipidaemia [Unknown]
  - Osteoarthritis [Unknown]
  - Treatment failure [Unknown]
  - Morton^s neuralgia [Unknown]
  - Femur fracture [Unknown]
  - Ovarian cyst [Unknown]
  - Hepatitis [Unknown]
  - Ovarian disorder [Unknown]
  - Bursitis [Unknown]
  - Chronic obstructive pulmonary disease [Unknown]
  - Fall [Unknown]

NARRATIVE: CASE EVENT DATE: 1997
